FAERS Safety Report 8457321-5 (Version None)
Quarter: 2012Q2

REPORT INFORMATION
  Report Type: 
  Country: None (occurrence: None)
  Receive Date: 20120621
  Receipt Date: 20120618
  Transmission Date: 20120825
  Serious: Yes (Other)
  Sender: FDA-Public Use
  Company Number: US-PFIZER INC-2012132666

PATIENT
  Sex: Female
  Weight: 70 kg

DRUGS (7)
  1. ASPIRIN [Concomitant]
     Dosage: UNK
  2. CELEBREX [Suspect]
     Indication: ARTHRITIS
     Dosage: 200 MG, DAILY
  3. LASIX [Concomitant]
     Dosage: UNK
  4. CELEBREX [Suspect]
  5. LEVOTHYROXINE [Concomitant]
     Indication: THYROID DISORDER
     Dosage: UNK
     Dates: start: 19560101
  6. DILTIAZEM [Concomitant]
     Indication: BLOOD PRESSURE ABNORMAL
     Dosage: 120 MG, 2X/DAY
  7. PREVACID [Concomitant]
     Dosage: UNK

REACTIONS (1)
  - BLADDER DISORDER [None]
